FAERS Safety Report 12823217 (Version 1)
Quarter: 2016Q4

REPORT INFORMATION
  Report Type: Spontaneous
  Country: US (occurrence: US)
  Receive Date: 20161007
  Receipt Date: 20161007
  Transmission Date: 20170207
  Serious: Yes (Hospitalization)
  Sender: FDA-Public Use
  Company Number: None

PATIENT
  Sex: Female

DRUGS (6)
  1. SYNTHROID [Concomitant]
     Active Substance: LEVOTHYROXINE SODIUM
  2. SUCRALFATE. [Concomitant]
     Active Substance: SUCRALFATE
  3. PROTONIX [Concomitant]
     Active Substance: PANTOPRAZOLE SODIUM
  4. SPRYCEL [Suspect]
     Active Substance: DASATINIB
     Indication: LEUKAEMIA
     Dates: start: 20160409
  5. JAKAFI [Concomitant]
     Active Substance: RUXOLITINIB
  6. LYRICA [Concomitant]
     Active Substance: PREGABALIN

REACTIONS (3)
  - Incorrect dose administered [None]
  - Gastric haemorrhage [None]
  - Therapy cessation [None]

NARRATIVE: CASE EVENT DATE: 2016
